FAERS Safety Report 18487703 (Version 2)
Quarter: 2020Q4

REPORT INFORMATION
  Report Type: Spontaneous
  Country: US (occurrence: US)
  Receive Date: 20201110
  Receipt Date: 20201119
  Transmission Date: 20210114
  Serious: No
  Sender: FDA-Public Use
  Company Number: US-SA-2020SA312297

PATIENT

DRUGS (1)
  1. XYZAL [Suspect]
     Active Substance: LEVOCETIRIZINE DIHYDROCHLORIDE
     Dosage: AT BEDTIME
     Route: 065

REACTIONS (4)
  - Motor dysfunction [Recovered/Resolved]
  - Feeling abnormal [Recovered/Resolved]
  - Bradykinesia [Recovered/Resolved]
  - Thinking abnormal [Recovered/Resolved]
